FAERS Safety Report 8475512 (Version 2)
Quarter: 2012Q4

REPORT INFORMATION
  Report Type: 
  Country: US (occurrence: US)
  Receive Date: 20120326
  Receipt Date: 20121224
  Transmission Date: 20130627
  Serious: Yes (Other)
  Sender: FDA-Public Use
  Company Number: US-AMGEN-USASP2012017976

PATIENT
  Age: 37 Year
  Sex: Female

DRUGS (6)
  1. FILGRASTIM [Suspect]
     Indication: BREAST CANCER
     Dosage: 5 mug/kg, UNK days 2-11
     Route: 058
     Dates: start: 20081118
  2. BEVACIZUMAB [Concomitant]
     Indication: BREAST CANCER
     Dosage: 10 mg/kg, UNK over 30- 90 mins on day 1
     Route: 042
     Dates: start: 20081118
  3. BEVACIZUMAB [Concomitant]
     Dosage: 15 mg/kg, UNK over 30- 90 mins on day 1
  4. DOXORUBICIN [Concomitant]
     Indication: BREAST CANCER
     Dosage: 60 mg/m2, UNK, IVP on day 1
     Route: 042
     Dates: start: 20081118
  5. CYCLOPHOSPHAMIDE [Concomitant]
     Indication: BREAST CANCER
     Dosage: 600 mg/m2, UNK,over 20- 30 mins on day 1)
     Route: 042
     Dates: start: 20081118
  6. PACLITAXEL [Concomitant]
     Indication: BREAST CANCER
     Dosage: 80 mg/m2, UNK over 1 hr on days 1, 8, I5)
     Route: 042
     Dates: start: 20081118

REACTIONS (1)
  - Left ventricular dysfunction [Recovered/Resolved]
